FAERS Safety Report 5578391-8 (Version None)
Quarter: 2007Q4

REPORT INFORMATION
  Report Type: 
  Country: None (occurrence: None)
  Receive Date: 20071231
  Receipt Date: 20071219
  Transmission Date: 20080405
  Serious: No
  Sender: FDA-Public Use
  Company Number: US-PFIZER INC-2007107994

PATIENT
  Sex: Female
  Weight: 62.6 kg

DRUGS (7)
  1. CHANTIX [Suspect]
     Indication: SMOKING CESSATION THERAPY
     Route: 048
     Dates: start: 20070101, end: 20070101
  2. TOPAMAX [Suspect]
     Indication: ARTHRALGIA
     Dosage: FREQ:EVERY DAY
     Dates: start: 20070101, end: 20070101
  3. TOPAMAX [Suspect]
     Indication: WEIGHT INCREASED
  4. SYNTHROID [Concomitant]
  5. OMEPRAZOLE [Concomitant]
  6. PREMARIN [Concomitant]
  7. VYTORIN [Concomitant]

REACTIONS (3)
  - GINGIVITIS [None]
  - GLOSSODYNIA [None]
  - WEIGHT INCREASED [None]
